FAERS Safety Report 23365183 (Version 1)
Quarter: 2024Q1

REPORT INFORMATION
  Report Type: Spontaneous
  Country: GB (occurrence: GB)
  Receive Date: 20240104
  Receipt Date: 20240104
  Transmission Date: 20240410
  Serious: Yes (Death, Disabling, Other)
  Sender: FDA-Public Use
  Company Number: None

PATIENT
  Age: 84 Year

DRUGS (1)
  1. RISPERIDONE [Suspect]
     Active Substance: RISPERIDONE
     Route: 065

REACTIONS (15)
  - Embolism [Fatal]
  - Bradykinesia [Unknown]
  - Drooling [Unknown]
  - Depressed level of consciousness [Unknown]
  - Hallucination, tactile [Unknown]
  - Gait disturbance [Unknown]
  - Aphasia [Unknown]
  - Decreased appetite [Unknown]
  - Constipation [Unknown]
  - Conjunctivitis [Unknown]
  - Yellow skin [Unknown]
  - Gait disturbance [Unknown]
  - Cough [Unknown]
  - Tremor [Unknown]
  - Weight decreased [Unknown]
